FAERS Safety Report 16712679 (Version 1)
Quarter: 2019Q3

REPORT INFORMATION
  Report Type: Spontaneous
  Country: FR (occurrence: FR)
  Receive Date: 20190816
  Receipt Date: 20190816
  Transmission Date: 20191004
  Serious: Yes (Death, Other)
  Sender: FDA-Public Use
  Company Number: PHHY2019FR190935

PATIENT
  Age: 70 Year
  Sex: Male

DRUGS (3)
  1. RITUXIMAB. [Suspect]
     Active Substance: RITUXIMAB
     Indication: PARANEOPLASTIC NEUROLOGICAL SYNDROME
     Dosage: 1 G, UNK
     Route: 065
  2. METHYLPREDNISOLONE. [Suspect]
     Active Substance: METHYLPREDNISOLONE
     Indication: PARANEOPLASTIC NEUROLOGICAL SYNDROME
     Dosage: 2 MG/KG, QD
     Route: 065
  3. PAROXETINE. [Suspect]
     Active Substance: PAROXETINE
     Indication: PARANEOPLASTIC NEUROLOGICAL SYNDROME
     Dosage: 20 MG, QD
     Route: 065

REACTIONS (6)
  - Cognitive disorder [Fatal]
  - Product use in unapproved indication [Unknown]
  - Condition aggravated [Fatal]
  - Hallucination [Fatal]
  - Disease recurrence [Unknown]
  - Paraneoplastic neurological syndrome [Fatal]
